FAERS Safety Report 9580566 (Version 1)
Quarter: 2013Q3

REPORT INFORMATION
  Report Type: Spontaneous
  Country: US (occurrence: None)
  Receive Date: 20130916
  Receipt Date: 20130916
  Transmission Date: 20140515
  Serious: Yes (Other)
  Sender: FDA-Public Use
  Company Number: JPI-P-030905

PATIENT
  Age: 56 Year
  Sex: Female

DRUGS (3)
  1. XYREM (500 MILLIGRAM/MILLILITERS, SOLUTION) (SODIUM OXYBATE) [Suspect]
     Indication: NARCOLEPSY
     Route: 048
     Dates: start: 20130313, end: 201303
  2. XYREM (500 MILLIGRAM/MILLILITERS, SOLUTION) (SODIUM OXYBATE) [Suspect]
     Indication: SOMNOLENCE
     Route: 048
     Dates: start: 20130313, end: 201303
  3. NORCO [Suspect]
     Indication: PRODUCT USED FOR UNKNOWN INDICATION

REACTIONS (13)
  - Blood pressure increased [None]
  - Emotional disorder [None]
  - Tinnitus [None]
  - Condition aggravated [None]
  - Pollakiuria [None]
  - Vocal cord disorder [None]
  - Burning sensation [None]
  - Chest pain [None]
  - Pain [None]
  - Facial pain [None]
  - Insomnia [None]
  - Headache [None]
  - Polydipsia [None]
